FAERS Safety Report 16009187 (Version 1)
Quarter: 2019Q1

REPORT INFORMATION
  Report Type: Spontaneous
  Country: CN (occurrence: CN)
  Receive Date: 20190226
  Receipt Date: 20190226
  Transmission Date: 20190418
  Serious: Yes (Other)
  Sender: FDA-Public Use
  Company Number: CN-BAXTER-2019BAX003847

PATIENT
  Age: 66 Year
  Sex: Male
  Weight: 66 kg

DRUGS (23)
  1. PREDNISONE ACETATE [Suspect]
     Active Substance: PREDNISONE ACETATE
     Dosage: DOSE RE-INTRODUCED, TABLETS
     Route: 048
  2. SODIUM CHLORIDE. [Suspect]
     Active Substance: SODIUM CHLORIDE
     Dosage: DOSE RE-INTRODUCED, VINDESINE SULFATE + 0.9% SODIUM CHLORIDE
     Route: 042
  3. OMEPRAZOLE. [Concomitant]
     Active Substance: OMEPRAZOLE
     Indication: PROPHYLAXIS
     Route: 042
  4. 0.9% SODIUM CHLORIDE INJECTION [Suspect]
     Active Substance: SODIUM CHLORIDE
     Indication: MEDICATION DILUTION
     Dosage: MABTHERA 0.1 G + 100 ML OF 0.9% OF SODIUM CHLORIDE
     Route: 041
     Dates: start: 20181228, end: 20181228
  5. PREDNISONE ACETATE [Suspect]
     Active Substance: PREDNISONE ACETATE
     Indication: B-CELL LYMPHOMA
     Dosage: TABLETS
     Route: 048
     Dates: start: 20181229, end: 20190103
  6. SODIUM CHLORIDE. [Suspect]
     Active Substance: SODIUM CHLORIDE
     Indication: MEDICATION DILUTION
     Dosage: MABTHERA 600 MG + 500 ML OF 0.9% OF SODIUM CHLORIDE
     Route: 041
     Dates: start: 20181228, end: 20181228
  7. MABTHERA [Suspect]
     Active Substance: RITUXIMAB
     Dosage: DOSE RE-INTRODUCED, MABTHERA + 0.9% OF SODIUM CHLORIDE
     Route: 041
  8. SODIUM CHLORIDE. [Suspect]
     Active Substance: SODIUM CHLORIDE
     Dosage: PHARMORUBICIN 110 MG + 100 ML OF 0.9% SODIUM CHLORIDE
     Route: 041
     Dates: start: 20181229, end: 20181229
  9. DIPHENHYDRAMINE. [Concomitant]
     Active Substance: DIPHENHYDRAMINE
     Indication: PROPHYLAXIS OF NAUSEA AND VOMITING
     Route: 030
  10. TROPISETRON [Concomitant]
     Active Substance: TROPISETRON
     Indication: PROPHYLAXIS OF NAUSEA AND VOMITING
     Route: 041
  11. MABTHERA [Suspect]
     Active Substance: RITUXIMAB
     Dosage: MABTHERA 0.1 G + 100 ML OF 0.9% OF SODIUM CHLORIDE
     Route: 041
     Dates: start: 20181228, end: 20181228
  12. VINDESINE SULFATE [Suspect]
     Active Substance: VINDESINE SULFATE
     Indication: B-CELL LYMPHOMA
     Dosage: VINDESINE SULFATE 4 MG + 20 ML OF 0.9% SODIUM CHLORIDE
     Route: 042
     Dates: start: 20181229, end: 20181229
  13. SODIUM CHLORIDE. [Suspect]
     Active Substance: SODIUM CHLORIDE
     Indication: MEDICATION DILUTION
     Dosage: VINDESINE SULFATE 4 MG + 20 ML OF 0.9% SODIUM CHLORIDE
     Route: 042
     Dates: start: 20181229, end: 20181229
  14. ENDOXAN [Suspect]
     Active Substance: CYCLOPHOSPHAMIDE
     Indication: B-CELL LYMPHOMA
     Dosage: DOSAGE FORM: INJECTION, CYCLOPHOSPHAMIDE 1 G + 250 ML OF 0.9% SODIUM CHLORIDE
     Route: 041
     Dates: start: 20181229, end: 20181229
  15. MABTHERA [Suspect]
     Active Substance: RITUXIMAB
     Indication: B-CELL LYMPHOMA
     Dosage: MABTHERA 0.5 G + 500 ML OF 0.9% OF SODIUM CHLORIDE
     Route: 041
     Dates: start: 20181228, end: 20181228
  16. VINDESINE SULFATE [Suspect]
     Active Substance: VINDESINE SULFATE
     Dosage: DOSE RE-INTRODUCED, VINDESINE SULFATE + 0.9% SODIUM CHLORIDE
     Route: 042
  17. SODIUM CHLORIDE. [Suspect]
     Active Substance: SODIUM CHLORIDE
     Dosage: DOSE RE-INTRODUCED, MABTHERA + 0.9% OF SODIUM CHLORIDE
     Route: 041
  18. SODIUM CHLORIDE. [Suspect]
     Active Substance: SODIUM CHLORIDE
     Indication: MEDICATION DILUTION
     Dosage: CYCLOPHOSPHAMIDE 1 G + 250 ML OF 0.9% SODIUM CHLORIDE
     Route: 041
     Dates: start: 20181229, end: 20181229
  19. SODIUM CHLORIDE. [Suspect]
     Active Substance: SODIUM CHLORIDE
     Dosage: DOSE RE-INTRODUCED, PHARMORUBICIN + 0.9% SODIUM CHLORIDE
     Route: 041
  20. ENDOXAN [Suspect]
     Active Substance: CYCLOPHOSPHAMIDE
     Dosage: DOSAGE FORM: INJECTION, DOSE RE-INTRODUCED, CYCLOPHOSPHAMIDE + 0.9% SODIUM CHLORIDE
     Route: 041
  21. PHARMORUBICIN [Suspect]
     Active Substance: EPIRUBICIN
     Indication: B-CELL LYMPHOMA
     Dosage: PHARMORUBICIN 110 MG + 100 ML OF 0.9% SODIUM CHLORIDE
     Route: 041
     Dates: start: 20181229, end: 20181229
  22. PHARMORUBICIN [Suspect]
     Active Substance: EPIRUBICIN
     Dosage: DOSE RE-INTRODUCED, PHARMORUBICIN + 0.9% SODIUM CHLORIDE
     Route: 041
  23. SODIUM CHLORIDE. [Suspect]
     Active Substance: SODIUM CHLORIDE
     Dosage: DOSE RE-INTRODUCED, CYCLOPHOSPHAMIDE + 0.9% SODIUM CHLORIDE
     Route: 041

REACTIONS (1)
  - Bone marrow failure [Recovered/Resolved]

NARRATIVE: CASE EVENT DATE: 20190107
